FAERS Safety Report 4817333-7 (Version None)
Quarter: 2005Q3

REPORT INFORMATION
  Report Type: 
  Country: None (occurrence: None)
  Receive Date: 20050929
  Receipt Date: 20050725
  Transmission Date: 20060218
  Serious: Yes (Hospitalization)
  Sender: FDA-Public Use
  Company Number: 05P-163-0295369-00

PATIENT
  Age: 54 Year
  Sex: Female
  Weight: 92.9874 kg

DRUGS (3)
  1. HUMIRA [Suspect]
     Indication: RHEUMATOID ARTHRITIS
     Dosage: 40 MG, 1 IN 2 WK, SUBCUTANEOUS
     Route: 058
     Dates: start: 20040101, end: 20050501
  2. METOPROLOL SUCCINATE [Concomitant]
  3. IBUPROFEN [Concomitant]

REACTIONS (1)
  - THROMBOCYTOPENIA [None]
